FAERS Safety Report 9361539 (Version 1)
Quarter: 2013Q2

REPORT INFORMATION
  Report Type: Spontaneous
  Country: US (occurrence: US)
  Receive Date: 20130621
  Receipt Date: 20130621
  Transmission Date: 20140414
  Serious: No
  Sender: FDA-Public Use
  Company Number: US-PFIZER INC-2013185181

PATIENT
  Age: 71 Year
  Sex: Male
  Weight: 107 kg

DRUGS (5)
  1. CELEBREX [Suspect]
     Indication: SPONDYLITIS
     Dosage: 100 MG, 1X/DAY
     Dates: start: 201306
  2. METFORMIN [Concomitant]
     Indication: DIABETES MELLITUS
     Dosage: TWO TIMES A DAY
  3. METOPROLOL [Concomitant]
     Indication: HYPERTENSION
     Dosage: TWO TIMES A DAY
  4. LISINOPRIL [Concomitant]
     Indication: HYPERTENSION
     Dosage: TWO TIMES A DAY
  5. PLAVIX [Concomitant]
     Indication: STENT PLACEMENT
     Dosage: DAILY

REACTIONS (1)
  - Local swelling [Not Recovered/Not Resolved]
